FAERS Safety Report 7552336-3 (Version None)
Quarter: 2011Q2

REPORT INFORMATION
  Report Type: 
  Country: None (occurrence: None)
  Receive Date: 20110616
  Receipt Date: 20060112
  Transmission Date: 20111010
  Serious: Yes (Death)
  Sender: FDA-Public Use
  Company Number: PHFR2005GB03163

PATIENT
  Sex: Female

DRUGS (2)
  1. OXYBUTYNIN [Concomitant]
     Indication: SALIVARY HYPERSECRETION
     Dosage: 5 MG, BID
     Route: 048
     Dates: start: 20010927
  2. CLOZAPINE [Suspect]
     Indication: SCHIZOPHRENIA
     Dosage: 100MG DAILY
     Route: 048
     Dates: start: 20010927

REACTIONS (8)
  - PULMONARY OEDEMA [None]
  - ARTERIOSCLEROSIS CORONARY ARTERY [None]
  - PULMONARY CONGESTION [None]
  - CARDIAC FAILURE CONGESTIVE [None]
  - MYOCARDIAL ISCHAEMIA [None]
  - HEPATIC CONGESTION [None]
  - VENTRICULAR HYPERTROPHY [None]
  - CORONARY ARTERY OCCLUSION [None]
